FAERS Safety Report 6609977-7 (Version None)
Quarter: 2010Q1

REPORT INFORMATION
  Report Type: 
  Country: None (occurrence: None)
  Receive Date: 20100302
  Receipt Date: 20100217
  Transmission Date: 20100710
  Serious: Yes (Hospitalization)
  Sender: FDA-Public Use
  Company Number: PHEH2009US17410

PATIENT
  Sex: Male
  Weight: 71.655 kg

DRUGS (6)
  1. EXJADE [Suspect]
     Indication: MYELOPROLIFERATIVE DISORDER
     Dosage: 1250 MG, QD
     Route: 048
     Dates: start: 20091005, end: 20091129
  2. ALLOPURINOL [Concomitant]
     Dosage: 300 MG, QID
     Route: 048
     Dates: start: 20080820
  3. MULTI-VIT [Concomitant]
     Dosage: 1 DF, QD
     Route: 048
     Dates: start: 20080512
  4. NIASPAN [Concomitant]
     Dosage: 1000 MG, TID
     Route: 048
     Dates: start: 20091223
  5. PRAVASTATIN SODIUM [Concomitant]
     Dosage: 20 MG, QD
     Route: 048
     Dates: start: 20090818
  6. ACETAMINOPHEN [Concomitant]

REACTIONS (14)
  - CHILLS [None]
  - CHOLELITHIASIS [None]
  - CONFUSIONAL STATE [None]
  - DILATATION INTRAHEPATIC DUCT ACQUIRED [None]
  - HEPATIC CYST [None]
  - HEPATIC ENZYME INCREASED [None]
  - HEPATIC STEATOSIS [None]
  - INFECTION [None]
  - LIVER DISORDER [None]
  - LUNG INFILTRATION [None]
  - PLEURAL EFFUSION [None]
  - PNEUMONIA [None]
  - PYREXIA [None]
  - SPLENOMEGALY [None]
